FAERS Safety Report 8809940 (Version 8)
Quarter: 2014Q1

REPORT INFORMATION
  Report Type: Report from Study
  Country: JP (occurrence: JP)
  Receive Date: 20120926
  Receipt Date: 20140119
  Transmission Date: 20141002
  Serious: Yes (Hospitalization)
  Sender: FDA-Public Use
  Company Number: JP-009507513-2012SP021975

PATIENT
  Age: 54 Year
  Sex: Male
  Weight: 60 kg

DRUGS (55)
  1. PEGINTRON [Suspect]
     Indication: CHRONIC HEPATITIS C
     Dosage: 1.5 MICROGRAM PER KILOGRAM, QW
     Route: 058
     Dates: start: 20120221, end: 20120404
  2. PEGINTRON [Suspect]
     Dosage: 1.5 MICROGRAM PER KILOGRAM, UNK
     Route: 058
     Dates: start: 20120420, end: 20120518
  3. PEGINTRON [Suspect]
     Dosage: DOSAGE IS UNCERTAIN DURING A DAY.
     Route: 058
  4. REBETOL [Suspect]
     Indication: CHRONIC HEPATITIS C
     Dosage: DAILY DOSE UNKNOWN
     Route: 030
     Dates: start: 1997
  5. REBETOL [Suspect]
     Dosage: CUMULATIVE DOSE 1200 MG
     Route: 048
     Dates: start: 20120221, end: 20120312
  6. REBETOL [Suspect]
     Dosage: CUMULATIVE DOSE 1200 MG
     Route: 048
     Dates: start: 20120313, end: 20120410
  7. REBETOL [Suspect]
     Dosage: CUMULATIVE DOSE 1200 MG
     Route: 048
     Dates: start: 20120420, end: 20120424
  8. REBETOL [Suspect]
     Dosage: DOSAGE IS UNCERTAIN DURING A DAY.
     Route: 048
  9. INTRON A POWDER FOR INJECTION 300 [Suspect]
     Indication: CHRONIC HEPATITIS C
     Dosage: UNK
     Route: 030
     Dates: start: 1997
  10. TELAVIC [Suspect]
     Indication: CHRONIC HEPATITIS C
     Dosage: CUMULATIVE DOSE 4500 MG
     Route: 048
     Dates: start: 20120221, end: 20120410
  11. VOLTAREN [Concomitant]
     Indication: PROCTALGIA
     Dosage: 175 MG, QD
     Route: 054
     Dates: start: 20120221, end: 20120221
  12. VOLTAREN [Concomitant]
     Indication: PAIN
  13. LOXONIN [Concomitant]
     Indication: HEADACHE
     Dosage: 60 MG, QD
     Route: 048
     Dates: start: 20120222, end: 20120301
  14. LOXONIN [Concomitant]
     Indication: PYREXIA
     Dosage: 120 MG, QD
     Route: 048
     Dates: start: 20120302, end: 20120302
  15. LOXONIN [Concomitant]
     Indication: PAIN
     Dosage: 60 MG, QD
     Route: 048
     Dates: start: 20120303, end: 20120311
  16. LOXONIN [Concomitant]
     Indication: HEAT THERAPY
     Dosage: 60 MG, QD
     Route: 048
     Dates: start: 20120306, end: 20120315
  17. LOXONIN [Concomitant]
     Dosage: 60 MG, QD. DOSAGE TEXT: [ OTHER PURPOSES ]WHEN IT IS PAINFUI(UP TO THREE TIMES A DAY.
     Route: 048
     Dates: start: 20120413, end: 20120422
  18. POSTERISAN [Concomitant]
     Indication: HAEMORRHOIDS
     Dosage: 10 G, QD
     Route: 054
     Dates: start: 20120225, end: 20120225
  19. FULMETA [Concomitant]
     Indication: RASH
     Dosage: 5 G, QD
     Route: 061
     Dates: start: 20120227, end: 20120227
  20. FULMETA [Concomitant]
     Dosage: DOSAGE TEXT: ON THE BODY, RED AND ITCHY PARTS
     Route: 061
     Dates: start: 20120301, end: 20120301
  21. FULMETA [Concomitant]
     Dosage: DOSAGE TEXT: ON THE BODY, RED AND ITCHY PARTS
     Route: 061
     Dates: start: 20120306, end: 20120306
  22. FULMETA [Concomitant]
     Dosage: DOSAGE TEXT: ON THE BODY, RED AND ITCHY PARTS10 G, QD
     Route: 061
     Dates: start: 20120313, end: 20120313
  23. FULMETA [Concomitant]
     Dosage: 10 G, QD
     Route: 061
     Dates: start: 20120321, end: 20120321
  24. FULMETA [Concomitant]
     Dosage: 10 G, QD
     Route: 061
     Dates: start: 20120328, end: 20120328
  25. FULMETA [Concomitant]
     Dosage: 5 G, QD
     Route: 061
     Dates: start: 20120411, end: 20120411
  26. FULMETA [Concomitant]
     Dosage: 15 G, QD
     Route: 061
     Dates: start: 20120413, end: 20120413
  27. FULMETA [Concomitant]
     Dosage: ON THE BODY,RED AND ITCHY PARTS, ON HIRUDOID
     Route: 061
  28. FULMETA [Concomitant]
     Dosage: UNK
  29. TALION (BEPOTASTINE BESYLATE) [Concomitant]
     Indication: RASH
     Dosage: DOSAGE TEXT: AFTER THE BREAKFAST AND BEFORE SLEEP.
     Route: 048
     Dates: start: 20120227, end: 20120412
  30. TALION (BEPOTASTINE BESYLATE) [Concomitant]
     Dosage: DAILY DOSE UNKNOWN.
     Route: 048
     Dates: start: 20120413, end: 20120422
  31. TALION (BEPOTASTINE BESYLATE) [Concomitant]
     Dosage: DOSAGE TEXT: AFTER THE BREAKFAST AND BEFORE SLEEP.
     Route: 048
  32. TAVEGYL [Concomitant]
     Indication: RASH
     Dosage: DAILY DOSE UNKNOWN,BID, DOSAGE TEXT: AFTER THE BREAKFAST AND BEFORE SLEEP.
     Route: 048
     Dates: start: 20120301, end: 20120412
  33. TAVEGYL [Concomitant]
     Dosage: DOSAGE TEXT: AFTER THE BREAKFAST AND BEFORE SLEEP.
     Route: 048
     Dates: start: 20120301
  34. TAVEGYL [Concomitant]
     Dosage: DAILY DOSE UNKNOWN,BID
     Route: 048
     Dates: start: 20120413, end: 20120422
  35. TAVEGYL [Concomitant]
     Dosage: DAILY DOSE UNKNOWN,BID
     Route: 048
     Dates: start: 20120424, end: 20120425
  36. TAVEGYL [Concomitant]
     Dosage: DOSAGE TEXT: AFTER THE BREAKFAST AND BEFORE SLEEP.
     Route: 048
  37. ATARAX P [Concomitant]
     Indication: PRURITUS
     Dosage: UNK, TID. DOSAGE TEXT: AFTER THE BREAKFAST AND LUNCH, BEFORE SLEEP
     Route: 048
     Dates: start: 20120313, end: 20120320
  38. ATARAX P [Concomitant]
     Dosage: DAILY DOSAGE UNKNOWN.
     Route: 048
     Dates: start: 20120321, end: 20120422
  39. ATARAX P [Concomitant]
     Dosage: DAILY DOSAGE UNKNOWN
     Route: 048
     Dates: start: 20120424, end: 20120425
  40. ATARAX P [Concomitant]
     Dosage: DOSAGE TEXT: AFTER THE BREAKFAST AND LUNCH, BEFORE SLEEP
     Route: 048
  41. CELECOX [Concomitant]
     Indication: ARTHRALGIA
     Dosage: 100 MG, QD
     Route: 048
     Dates: start: 20120313, end: 20120320
  42. CELECOX [Concomitant]
     Dosage: 200 MG, QD
     Route: 048
     Dates: start: 20120321, end: 20120322
  43. CELECOX [Concomitant]
     Dosage: 100 MG, QD
     Route: 048
     Dates: start: 20120323, end: 20120327
  44. CELECOX [Concomitant]
     Dosage: 200 MG, QD
     Route: 048
     Dates: start: 20120328, end: 20120330
  45. CELECOX [Concomitant]
     Dosage: 100 MG, QD
     Route: 048
     Dates: start: 20120331, end: 20120403
  46. CELECOX [Concomitant]
     Dosage: 200 MG, QD
     Route: 048
     Dates: start: 20120404, end: 20120406
  47. CELECOX [Concomitant]
     Dosage: 100 MG, QD
     Route: 048
     Dates: start: 20120407, end: 20120413
  48. HIRUDOID [Concomitant]
     Indication: RASH
     Dosage: 20 G, QD
     Route: 061
     Dates: start: 20120321, end: 20120321
  49. HIRUDOID [Concomitant]
     Dosage: 20 G, QD
     Route: 061
     Dates: start: 20120328, end: 20120328
  50. HIRUDOID [Concomitant]
     Dosage: 20 G, QD
     Route: 061
     Dates: start: 20120411, end: 20120411
  51. HIRUDOID [Concomitant]
     Dosage: DOSAGE TEXT: DRY SKIN. DAILY DOSE UNKNOWN.
     Route: 061
  52. PETROLATUM SALICYLATE [Concomitant]
     Indication: RASH
     Dosage: 20 G, QD
     Route: 061
     Dates: start: 20120321, end: 20120321
  53. PETROLATUM SALICYLATE [Concomitant]
     Dosage: 20 G, QD
     Route: 061
     Dates: start: 20120328, end: 20120328
  54. PETROLATUM SALICYLATE [Concomitant]
     Dosage: DOSAGE TEXT: HANDS AND FEET, PALMS AND SOULS OF THE FEET. DAILY DOSE UNKNOWN
     Route: 061
  55. ZYLORIC [Concomitant]
     Indication: HYPERURICAEMIA
     Dosage: DAILY DOSE UNKNOWN
     Route: 048
     Dates: start: 20120404, end: 20120410

REACTIONS (6)
  - Drug ineffective [Unknown]
  - Toxic skin eruption [Recovered/Resolved]
  - Neutropenia [Recovered/Resolved]
  - White blood cell count decreased [Recovering/Resolving]
  - Eosinophil count increased [Recovering/Resolving]
  - Hepatitis C RNA increased [Unknown]
